FAERS Safety Report 7981103-1 (Version None)
Quarter: 2011Q4

REPORT INFORMATION
  Report Type: 
  Country: None (occurrence: None)
  Receive Date: 20111212
  Receipt Date: 20111129
  Transmission Date: 20120403
  Serious: Yes (Hospitalization)
  Sender: FDA-Public Use
  Company Number: IMP_05472_2011

PATIENT
  Age: 51 Year
  Sex: Male

DRUGS (2)
  1. METFORMIN HCL [Suspect]
     Indication: DIABETES MELLITUS
     Dosage: (EVERY 6 HOURS)
  2. OXYCODONE/ACETAMINOPHEN [Concomitant]

REACTIONS (8)
  - BLOOD PRESSURE DECREASED [None]
  - BLOOD LACTIC ACID INCREASED [None]
  - BLOOD GLUCOSE DECREASED [None]
  - NEURALGIA [None]
  - BLOOD CREATININE INCREASED [None]
  - INCORRECT DOSE ADMINISTERED [None]
  - UNRESPONSIVE TO STIMULI [None]
  - ACIDOSIS [None]
